FAERS Safety Report 5877997-6 (Version None)
Quarter: 2008Q3

REPORT INFORMATION
  Report Type: 
  Country: None (occurrence: None)
  Receive Date: 20080909
  Receipt Date: 20080909
  Transmission Date: 20090109
  Serious: Yes (Hospitalization)
  Sender: FDA-Public Use
  Company Number: None

PATIENT
  Sex: Male
  Weight: 86.2 kg

DRUGS (4)
  1. QUADRAMET [Suspect]
     Dosage: 99.7 MCI
  2. ZOMETA [Suspect]
     Dosage: 25.3 MG
  3. LUPRON + CASODEX [Concomitant]
  4. MITOXANTRONE + PREDNISONE [Concomitant]

REACTIONS (13)
  - BLOODY DISCHARGE [None]
  - BODY TEMPERATURE INCREASED [None]
  - DISEASE PROGRESSION [None]
  - HYDRONEPHROSIS [None]
  - HYPOTENSION [None]
  - LUNG DISORDER [None]
  - LYMPHADENOPATHY [None]
  - MEDIASTINAL DISORDER [None]
  - NEUTROPENIA [None]
  - PROSTATIC SPECIFIC ANTIGEN INCREASED [None]
  - RETROPERITONEAL LYMPHADENOPATHY [None]
  - TREATMENT FAILURE [None]
  - VOMITING [None]
